FAERS Safety Report 26122041 (Version 1)
Quarter: 2025Q4

REPORT INFORMATION
  Report Type: Spontaneous
  Country: TR (occurrence: TR)
  Receive Date: 20251204
  Receipt Date: 20251204
  Transmission Date: 20260118
  Serious: Yes (Other)
  Sender: IMMUNOCORE
  Company Number: TR-IMMUNOCORE, LTD-2025-IMC-005127

PATIENT

DRUGS (1)
  1. TEBENTAFUSP [Suspect]
     Active Substance: TEBENTAFUSP
     Indication: Metastatic ocular melanoma
     Dosage: UNK 50 CYCLES

REACTIONS (2)
  - Metastases to liver [Unknown]
  - Metastases to bone [Unknown]
